FAERS Safety Report 4641385-0 (Version None)
Quarter: 2005Q2

REPORT INFORMATION
  Report Type: 
  Country: None (occurrence: None)
  Receive Date: 20050421
  Receipt Date: 20050408
  Transmission Date: 20051028
  Serious: Yes (Other)
  Sender: FDA-Public Use
  Company Number: US-GLAXOSMITHKLINE-A0553330A

PATIENT
  Sex: Female

DRUGS (2)
  1. NICODERM CQ [Suspect]
     Dosage: 21MG PER DAY
     Route: 062
     Dates: start: 20040901
  2. NICODERM CQ [Suspect]
     Dosage: 14MG PER DAY
     Route: 062

REACTIONS (3)
  - APPLICATION SITE DERMATITIS [None]
  - APPLICATION SITE PRURITUS [None]
  - MULTIPLE SCLEROSIS [None]
